FAERS Safety Report 6264165-1 (Version None)
Quarter: 2009Q3

REPORT INFORMATION
  Report Type: 
  Country: None (occurrence: None)
  Receive Date: 20090706
  Receipt Date: 20090304
  Transmission Date: 20100115
  Serious: Yes (Other)
  Sender: FDA-Public Use
  Company Number: 619647

PATIENT
  Age: 82 Year
  Sex: Male

DRUGS (6)
  1. CELLCEPT [Suspect]
     Indication: MYASTHENIA GRAVIS
     Dosage: 500 MG  2 PER DAY ORAL
     Route: 048
     Dates: start: 20080814
  2. GLIPIZIDE [Concomitant]
  3. SIMVASTATIN [Concomitant]
  4. MESTINON [Concomitant]
  5. PREDNISONE [Concomitant]
  6. BUMETANIDE INTRAVENOUS (BUMETANIDE) [Concomitant]

REACTIONS (3)
  - ANXIETY [None]
  - DYSPNOEA EXERTIONAL [None]
  - NASAL CONGESTION [None]
